FAERS Safety Report 24824606 (Version 1)
Quarter: 2025Q1

REPORT INFORMATION
  Report Type: Spontaneous
  Country: US (occurrence: None)
  Receive Date: 20250108
  Receipt Date: 20250108
  Transmission Date: 20250409
  Serious: No
  Sender: FDA-CTU
  Company Number: None

PATIENT
  Age: 31 Year
  Sex: Female
  Weight: 60.75 kg

DRUGS (12)
  1. AMOXICILLIN\CLAVULANATE POTASSIUM [Suspect]
     Active Substance: AMOXICILLIN\CLAVULANATE POTASSIUM
     Indication: Sinusitis
     Dosage: FREQUENCY : EVERY 12 HOURS;?
     Route: 048
     Dates: start: 20250106, end: 20250108
  2. BUPROPION [Concomitant]
     Active Substance: BUPROPION
  3. LORAZEPAM [Concomitant]
     Active Substance: LORAZEPAM
  4. ONDASTRON [Concomitant]
  5. RIZATRIPTAN [Concomitant]
     Active Substance: RIZATRIPTAN
  6. FAMOTIDINE [Concomitant]
     Active Substance: FAMOTIDINE
  7. HYOSCYAMINE [Concomitant]
     Active Substance: HYOSCYAMINE
  8. ADDERALL [Concomitant]
     Active Substance: AMPHETAMINE ASPARTATE\AMPHETAMINE SULFATE\DEXTROAMPHETAMINE SACCHARATE\DEXTROAMPHETAMINE SULFATE
  9. TYLENOL [Concomitant]
     Active Substance: ACETAMINOPHEN
  10. CITRUCEL [Concomitant]
     Active Substance: METHYLCELLULOSE (4000 CPS)
  11. VITAMIN D [Concomitant]
     Active Substance: VITAMIN D NOS
  12. VITAMIN C [Concomitant]
     Active Substance: ASCORBIC ACID

REACTIONS (4)
  - Nausea [None]
  - Diarrhoea [None]
  - Vomiting [None]
  - Pain [None]

NARRATIVE: CASE EVENT DATE: 20250107
